FAERS Safety Report 23213354 (Version 1)
Quarter: 2023Q4

REPORT INFORMATION
  Report Type: Spontaneous
  Country: US (occurrence: US)
  Receive Date: 20231121
  Receipt Date: 20231121
  Transmission Date: 20240110
  Serious: No
  Sender: FDA-Public Use
  Company Number: US-NEUROCRINE BIOSCIENCES INC.-2023NBI09820

PATIENT
  Age: 21 Year
  Sex: Female

DRUGS (3)
  1. INGREZZA [Suspect]
     Active Substance: VALBENAZINE
     Indication: Dyskinesia
     Dosage: 40 MILLIGRAM, QD
     Route: 048
  2. OLANZAPINE [Concomitant]
     Active Substance: OLANZAPINE
     Dosage: 2.5 MILLIGRAM
     Route: 065
  3. REXULTI [Concomitant]
     Active Substance: BREXPIPRAZOLE
     Dosage: 1 MILLIGRAM
     Route: 065

REACTIONS (1)
  - Dystonia [Unknown]
